FAERS Safety Report 23614261 (Version 1)
Quarter: 2024Q1

REPORT INFORMATION
  Report Type: Other
  Country: SE (occurrence: SE)
  Receive Date: 20240311
  Receipt Date: 20240311
  Transmission Date: 20240410
  Serious: Yes (Hospitalization)
  Sender: FDA-Public Use
  Company Number: SE-DENTSPLY-2024SCDP000057

PATIENT
  Age: 69 Year
  Sex: Female

DRUGS (7)
  1. EPINEPHRINE BITARTRATE\LIDOCAINE HYDROCHLORIDE [Suspect]
     Active Substance: EPINEPHRINE BITARTRATE\LIDOCAINE HYDROCHLORIDE
     Indication: Product used for unknown indication
     Dosage: UNK DOSE OF 20 MG/ML + 12.5 MCGS/ML XYLOCAIN DENTAL ADRENALIN  INJECTIONFLUID, SOLUTION/SOLUTION FOR
     Dates: start: 20240219, end: 20240219
  2. PAROXETINE [Concomitant]
     Active Substance: PAROXETINE
     Indication: Product used for unknown indication
     Dosage: UNK DOSE OF PAROXETIN 2CARE4
  3. EPINEPHRINE\PRILOCAINE [Concomitant]
     Active Substance: EPINEPHRINE\PRILOCAINE
     Indication: Product used for unknown indication
     Dosage: UNK DOSE OF 30 MG/ML + 0.54 MCG/ML CITANEST DENTAL OCTAPRESSIN  INJECTIONFLUID, SOLUTION/SOLUTION FO
     Dates: start: 20240219, end: 20240219
  4. SIMVASTATIN [Concomitant]
     Active Substance: SIMVASTATIN
     Indication: Product used for unknown indication
     Dosage: UNK
  5. LEVOTHYROXINE SODIUM [Concomitant]
     Active Substance: LEVOTHYROXINE SODIUM
     Indication: Product used for unknown indication
     Dosage: UNK
  6. AMITRIPTYLINE [Concomitant]
     Active Substance: AMITRIPTYLINE
     Indication: Product used for unknown indication
     Dosage: UNK
  7. GABAPENTIN [Concomitant]
     Active Substance: GABAPENTIN
     Indication: Product used for unknown indication
     Dosage: UNK

REACTIONS (3)
  - Muscular weakness [Recovered/Resolved]
  - Muscle tightness [Recovered/Resolved]
  - Speech disorder [Recovered/Resolved]

NARRATIVE: CASE EVENT DATE: 20240219
